FAERS Safety Report 5713306-0 (Version None)
Quarter: 2008Q2

REPORT INFORMATION
  Report Type: 
  Country: None (occurrence: None)
  Receive Date: 20080418
  Receipt Date: 20080222
  Transmission Date: 20081010
  Serious: Yes (Death, Hospitalization, Other)
  Sender: FDA-Public Use
  Company Number: 2008AL002137

PATIENT
  Age: 48 Year
  Sex: Male

DRUGS (8)
  1. METFORMIN HYDROCHLORIDE [Suspect]
     Indication: DIABETES MELLITUS
     Dosage: 2 GM;QD;PO
     Route: 048
     Dates: start: 20060810, end: 20070308
  2. LIRAGLUTIDE [Concomitant]
  3. AMARYL [Concomitant]
  4. INSULIN GLARNINE [Concomitant]
  5. PRAVASTATIN [Concomitant]
  6. METFORMIN HCL [Concomitant]
  7. LISININOPRIL [Concomitant]
  8. NIFEDIPINE [Concomitant]

REACTIONS (6)
  - DISCOMFORT [None]
  - MALIGNANT NEOPLASM PROGRESSION [None]
  - METASTASES TO BONE [None]
  - METASTASES TO LIVER [None]
  - METASTASES TO LUNG [None]
  - RENAL CELL CARCINOMA STAGE IV [None]
